FAERS Safety Report 19282172 (Version 1)
Quarter: 2021Q2

REPORT INFORMATION
  Report Type: Spontaneous
  Country: AT (occurrence: AT)
  Receive Date: 20210521
  Receipt Date: 20210521
  Transmission Date: 20210717
  Serious: Yes (Other)
  Sender: FDA-Public Use
  Company Number: AT-ESPERIONTHERAPEUTICS-2021AUT00998

PATIENT
  Age: 57 Year
  Sex: Female
  Weight: 72 kg

DRUGS (5)
  1. ESTROGEL [Concomitant]
     Active Substance: ESTRADIOL
     Indication: PRODUCT USED FOR UNKNOWN INDICATION
     Dosage: UNK
     Route: 065
  2. NILEMDO [Suspect]
     Active Substance: BEMPEDOIC ACID
     Dosage: UNK
     Route: 065
     Dates: start: 202105, end: 202105
  3. MICARDIS [Concomitant]
     Active Substance: TELMISARTAN
     Indication: BLOOD PRESSURE ABNORMAL
     Dosage: 80 MG
     Route: 065
  4. ANTIHISTAMINES FOR SYSTEMIC USE [Concomitant]
     Active Substance: ANTIHISTAMINES NOS
     Indication: HISTAMINE INTOLERANCE
     Dosage: UNK
     Route: 065
  5. NILEMDO [Suspect]
     Active Substance: BEMPEDOIC ACID
     Indication: BLOOD CHOLESTEROL INCREASED
     Dosage: UNK
     Route: 065
     Dates: start: 202104, end: 202105

REACTIONS (6)
  - Self-injurious ideation [Recovered/Resolved]
  - Burning sensation [Unknown]
  - Panic attack [Recovered/Resolved]
  - Blood pressure increased [Recovered/Resolved]
  - Crying [Recovered/Resolved]
  - Depression [Recovered/Resolved]
